FAERS Safety Report 24779179 (Version 2)
Quarter: 2025Q1

REPORT INFORMATION
  Report Type: Spontaneous
  Country: PT (occurrence: PT)
  Receive Date: 20241226
  Receipt Date: 20250109
  Transmission Date: 20250409
  Serious: Yes (Hospitalization, Other)
  Sender: PFIZER
  Company Number: PT-MLMSERVICE-20241216-PI294244-00255-3

PATIENT
  Age: 33 Year
  Sex: Female

DRUGS (21)
  1. BEVACIZUMAB-BVZR [Suspect]
     Active Substance: BEVACIZUMAB-BVZR
     Indication: Neuroendocrine carcinoma of the cervix
  2. BEVACIZUMAB-BVZR [Suspect]
     Active Substance: BEVACIZUMAB-BVZR
     Indication: Metastases to breast
  3. BEVACIZUMAB-BVZR [Suspect]
     Active Substance: BEVACIZUMAB-BVZR
     Indication: Metastases to pancreas
  4. BEVACIZUMAB-BVZR [Suspect]
     Active Substance: BEVACIZUMAB-BVZR
     Indication: Metastases to ovary
  5. BEVACIZUMAB-BVZR [Suspect]
     Active Substance: BEVACIZUMAB-BVZR
     Indication: Metastases to bone
  6. BEVACIZUMAB-BVZR [Suspect]
     Active Substance: BEVACIZUMAB-BVZR
     Indication: Disease progression
  7. BEVACIZUMAB-BVZR [Suspect]
     Active Substance: BEVACIZUMAB-BVZR
     Indication: Papilloma viral infection
  8. PACLITAXEL [Suspect]
     Active Substance: PACLITAXEL
     Indication: Neuroendocrine carcinoma of the cervix
  9. PACLITAXEL [Suspect]
     Active Substance: PACLITAXEL
     Indication: Metastases to breast
  10. PACLITAXEL [Suspect]
     Active Substance: PACLITAXEL
     Indication: Metastases to pancreas
  11. PACLITAXEL [Suspect]
     Active Substance: PACLITAXEL
     Indication: Metastases to ovary
  12. PACLITAXEL [Suspect]
     Active Substance: PACLITAXEL
     Indication: Disease progression
  13. PACLITAXEL [Suspect]
     Active Substance: PACLITAXEL
     Indication: Metastases to bone
  14. PACLITAXEL [Suspect]
     Active Substance: PACLITAXEL
     Indication: Papilloma viral infection
  15. TOPOTECAN [Suspect]
     Active Substance: TOPOTECAN HYDROCHLORIDE
     Indication: Neuroendocrine carcinoma of the cervix
  16. TOPOTECAN [Suspect]
     Active Substance: TOPOTECAN HYDROCHLORIDE
     Indication: Metastases to breast
  17. TOPOTECAN [Suspect]
     Active Substance: TOPOTECAN HYDROCHLORIDE
     Indication: Metastases to pancreas
  18. TOPOTECAN [Suspect]
     Active Substance: TOPOTECAN HYDROCHLORIDE
     Indication: Metastases to ovary
  19. TOPOTECAN [Suspect]
     Active Substance: TOPOTECAN HYDROCHLORIDE
     Indication: Metastases to bone
  20. TOPOTECAN [Suspect]
     Active Substance: TOPOTECAN HYDROCHLORIDE
     Indication: Disease progression
  21. TOPOTECAN [Suspect]
     Active Substance: TOPOTECAN HYDROCHLORIDE
     Indication: Papilloma viral infection

REACTIONS (1)
  - Skin toxicity [Unknown]
